FAERS Safety Report 6075167-2 (Version None)
Quarter: 2009Q1

REPORT INFORMATION
  Report Type: 
  Country: None (occurrence: None)
  Receive Date: 20090210
  Receipt Date: 20090210
  Transmission Date: 20090719
  Serious: No
  Sender: FDA-Public Use
  Company Number: None

PATIENT
  Age: 61 Year
  Sex: Male
  Weight: 67.13 kg

DRUGS (1)
  1. VANCOMYCIN [Suspect]
     Dosage: 1000 MG BID IV
     Route: 042
     Dates: start: 20081208, end: 20081208

REACTIONS (4)
  - BODY TEMPERATURE INCREASED [None]
  - HYPERTENSION [None]
  - PSORIASIS [None]
  - RASH [None]
